FAERS Safety Report 5070914-0 (Version None)
Quarter: 2006Q3

REPORT INFORMATION
  Report Type: 
  Country: None (occurrence: None)
  Receive Date: 20060714
  Receipt Date: 20060424
  Transmission Date: 20061208
  Serious: No
  Sender: FDA-Public Use
  Company Number: 2006SP001796

PATIENT
  Age: 66 Year
  Sex: Female
  Weight: 53.5244 kg

DRUGS (8)
  1. LUNESTA [Suspect]
     Indication: INSOMNIA
     Dosage: 2 MG;HS;ORAL
     Route: 048
     Dates: start: 20060421
  2. DIPHENHYDRAMINE [Concomitant]
  3. ACTONEL [Concomitant]
  4. PROZAC [Concomitant]
  5. OMEGA 3 [Concomitant]
  6. VITAMINS [Concomitant]
  7. HERBAL PREPARATION [Concomitant]
  8. ZYRTEC [Concomitant]

REACTIONS (3)
  - ANOREXIA [None]
  - DYSGEUSIA [None]
  - WEIGHT DECREASED [None]
